FAERS Safety Report 4696300-0 (Version None)
Quarter: 2005Q2

REPORT INFORMATION
  Report Type: 
  Country: None (occurrence: None)
  Receive Date: 20050621
  Receipt Date: 20050428
  Transmission Date: 20051028
  Serious: Yes (Hospitalization)
  Sender: FDA-Public Use
  Company Number: PHEH2005US04916

PATIENT
  Sex: Female

DRUGS (4)
  1. LESCOL XL [Suspect]
     Dosage: UNK, ONCE/SINGLE
     Dates: start: 20050301, end: 20050301
  2. LESCOL XL [Suspect]
     Dosage: UNK, ONCE/SINGLE
     Dates: start: 20050428, end: 20050428
  3. PREMARIN [Concomitant]
  4. CONCERTA [Concomitant]

REACTIONS (9)
  - ALANINE AMINOTRANSFERASE INCREASED [None]
  - ARTHRALGIA [None]
  - BLOOD ALKALINE PHOSPHATASE INCREASED [None]
  - CHEST PAIN [None]
  - DIZZINESS [None]
  - HYPERHIDROSIS [None]
  - HYPOTENSION [None]
  - SHOULDER PAIN [None]
  - SYNCOPE [None]
